FAERS Safety Report 23457041 (Version 2)
Quarter: 2024Q1

REPORT INFORMATION
  Report Type: Spontaneous
  Country: FR (occurrence: FR)
  Receive Date: 20240130
  Receipt Date: 20240208
  Transmission Date: 20240410
  Serious: Yes (Hospitalization, Other)
  Sender: FDA-Public Use
  Company Number: None

PATIENT
  Age: 25 Year
  Sex: Male
  Weight: 57.8 kg

DRUGS (17)
  1. YESCARTA [Suspect]
     Active Substance: AXICABTAGENE CILOLEUCEL
     Indication: Diffuse large B-cell lymphoma refractory
     Route: 042
     Dates: start: 20230614, end: 20230614
  2. PIPERACILLIN SODIUM\TAZOBACTAM SODIUM [Concomitant]
     Active Substance: PIPERACILLIN SODIUM\TAZOBACTAM SODIUM
     Indication: Pneumonia
     Dosage: SOIT 24 G DE PIP?RACILLINEJ
     Route: 042
     Dates: start: 20230605, end: 20230625
  3. RACECADOTRIL ARROW [Concomitant]
     Indication: Diarrhoea
     Dosage: 100 MG
     Route: 048
  4. TRAMADOL HYDROCHLORIDE [Concomitant]
     Active Substance: TRAMADOL HYDROCHLORIDE
     Indication: Pain
     Dosage: 100 MG
     Route: 042
  5. ACICLOVIR MYLAN [ACICLOVIR SODIUM] [Concomitant]
     Indication: Cytomegalovirus infection reactivation
     Dosage: 300 MG, TID
     Route: 042
     Dates: start: 20230608, end: 20230625
  6. PHYTONADIONE [Concomitant]
     Active Substance: PHYTONADIONE
     Indication: Vitamin supplementation
     Route: 042
  7. ACUPAN [Concomitant]
     Active Substance: NEFOPAM HYDROCHLORIDE
     Indication: Pain
     Route: 042
  8. PRIMPERAN [Concomitant]
     Active Substance: METOCLOPRAMIDE HYDROCHLORIDE
     Indication: Prophylaxis of nausea and vomiting
     Route: 042
  9. SMECTA [Concomitant]
     Active Substance: MONTMORILLONITE
     Indication: Diarrhoea
     Dosage: 1 DOSAGE FORM
     Route: 048
  10. BACTRIM [Concomitant]
     Active Substance: SULFAMETHOXAZOLE\TRIMETHOPRIM
     Indication: Opportunistic infection prophylaxis
     Dosage: 3 DOSAGE FORM, QID
     Route: 042
     Dates: start: 20230605
  11. LEUCOVORIN CALCIUM [Concomitant]
     Active Substance: LEUCOVORIN CALCIUM
     Indication: Drug toxicity prophylaxis
     Dosage: 5 MG, QD
     Route: 042
     Dates: start: 20230608, end: 20230619
  12. VALGANCICLOVIR HYDROCHLORIDE [Concomitant]
     Active Substance: VALGANCICLOVIR HYDROCHLORIDE
     Indication: Cytomegalovirus infection reactivation
     Dosage: 900 MG, BID
     Route: 048
     Dates: start: 20230609
  13. PANTOPRAZOLE SODIUM [Concomitant]
     Active Substance: PANTOPRAZOLE SODIUM
     Indication: Gastrooesophageal reflux prophylaxis
     Dosage: 20 MG, QD
     Route: 048
  14. CHLORHEXIDINE GLUCONATE\CHLOROBUTANOL [Concomitant]
     Active Substance: CHLORHEXIDINE GLUCONATE\CHLOROBUTANOL
     Indication: Stomatitis
     Dosage: 1 DOSAGE FORM, TID, SOLUTION POUR BAIN DE BOUCHE
     Route: 002
  15. INNOHEP [Concomitant]
     Active Substance: TINZAPARIN SODIUM
     Indication: Thrombosis prophylaxis
     Dosage: 11000 IU, QD, 14 000 U.I. ANTI-XA/0,7 ML, SOLUTION INJECTABLE (S.C.)
     Route: 058
  16. ONDANSETRON HYDROCHLORIDE [Concomitant]
     Active Substance: ONDANSETRON HYDROCHLORIDE
     Indication: Prophylaxis of nausea and vomiting
     Dosage: 8 MG, 2 MG/ML, SOLUTION INJECTABLE (I.V.)
     Route: 042
  17. ACETAMINOPHEN [Concomitant]
     Active Substance: ACETAMINOPHEN
     Indication: Pyrexia
     Dosage: 1 G, 10 MG/ML, SOLUTION POUR PERFUSION
     Route: 042

REACTIONS (3)
  - Thrombocytopenia [Not Recovered/Not Resolved]
  - Immune effector cell-associated neurotoxicity syndrome [Recovered/Resolved]
  - Cytokine release syndrome [Recovered/Resolved]

NARRATIVE: CASE EVENT DATE: 20230615
